FAERS Safety Report 22931268 (Version 2)
Quarter: 2024Q2

REPORT INFORMATION
  Report Type: Spontaneous
  Country: US (occurrence: US)
  Receive Date: 20230911
  Receipt Date: 20240402
  Transmission Date: 20240716
  Serious: Yes (Other)
  Sender: FDA-Public Use
  Company Number: US-PFIZER INC-2018007227

PATIENT
  Age: 20 Year
  Sex: Female

DRUGS (13)
  1. XELJANZ XR [Suspect]
     Active Substance: TOFACITINIB CITRATE
     Indication: Rheumatoid arthritis
     Dosage: 11 MG, 1X/DAY
     Route: 048
     Dates: start: 201707
  2. XELJANZ XR [Suspect]
     Active Substance: TOFACITINIB CITRATE
     Dosage: 11 MG, 1X/DAY
     Route: 048
     Dates: start: 20180107, end: 2023
  3. XELJANZ XR [Suspect]
     Active Substance: TOFACITINIB CITRATE
     Dosage: 11 MG, DAILY
     Route: 048
     Dates: end: 202402
  4. CALCIUM + MAGNESIUM + ZINK [Concomitant]
     Dosage: UNK (333-133)
  5. IRON [Concomitant]
     Active Substance: IRON
     Dosage: UNK
  6. TYLENOL ARTHRITIS PAIN [Concomitant]
     Active Substance: ACETAMINOPHEN
     Dosage: UNK
  7. VITAMIN C [Concomitant]
     Active Substance: ASCORBIC ACID
     Dosage: UNK
  8. VITAMIN D3 [Concomitant]
     Active Substance: CHOLECALCIFEROL
     Dosage: UNK
  9. ZINC [Concomitant]
     Active Substance: PYRITHIONE ZINC\ZINC\ZINC CHLORIDE
     Dosage: UNK
  10. NORETHINDRONE [Concomitant]
     Active Substance: NORETHINDRONE
     Dosage: UNK
  11. JUNEL [Concomitant]
     Active Substance: ETHINYL ESTRADIOL\NORETHINDRONE ACETATE
     Dosage: UNK
  12. SPIKEVAX [Concomitant]
     Dosage: UNK
     Dates: start: 2023, end: 2024
  13. FLUARIX NOS [Concomitant]
     Active Substance: INFLUENZA VIRUS VACCINE
     Dosage: UNK
     Dates: start: 2023, end: 2024

REACTIONS (2)
  - Ankle operation [Unknown]
  - Cough [Recovered/Resolved]

NARRATIVE: CASE EVENT DATE: 20180102
